FAERS Safety Report 7957676-1 (Version None)
Quarter: 2011Q4

REPORT INFORMATION
  Report Type: 
  Country: None (occurrence: None)
  Receive Date: 20111205
  Receipt Date: 20111128
  Transmission Date: 20120403
  Serious: Yes (Death, Hospitalization, Other)
  Sender: FDA-Public Use
  Company Number: PHEH2011US010386

PATIENT
  Sex: Female
  Weight: 67.574 kg

DRUGS (14)
  1. RECLAST [Suspect]
     Indication: OSTEOPOROSIS
     Dosage: UNK UKN, UNK
     Route: 042
     Dates: start: 20110802
  2. ZOFRAN [Concomitant]
     Dosage: 2 MG/ML, UNK
  3. NEXIUM [Concomitant]
     Dosage: 1 DF, QD
     Route: 048
  4. TIZANIDINE HCL [Concomitant]
     Dosage: 1 DF, PRN
     Route: 048
     Dates: start: 20110906
  5. ERGOCALCIFEROL [Concomitant]
     Dosage: 1 DF, QD
     Dates: start: 20110603, end: 20110823
  6. SPIRONOLACTONE [Concomitant]
     Dosage: 1 DF, QD PRN
     Dates: start: 20110823, end: 20110823
  7. CALCIUM CARBONATE [Concomitant]
     Dosage: 1500 MG, UNK
     Dates: end: 20110823
  8. ACETAMINOPHEN [Concomitant]
     Dosage: 650 MG, UNK
  9. KLOR-CON [Concomitant]
     Dosage: 2 DF, BID
     Route: 048
  10. MAGNESIUM SULFATE [Concomitant]
     Dosage: 1 DF, QD
     Route: 048
  11. MORPHINE [Concomitant]
     Dosage: 1-4 MG
  12. FUROSEMIDE [Concomitant]
     Indication: OEDEMA PERIPHERAL
     Dosage: 1-2 DF ONCE A DAY
     Dates: start: 20110808
  13. FLEXERIL [Concomitant]
     Dosage: 1 DF, PRN
     Route: 048
  14. ROCALTROL [Concomitant]
     Dosage: 0.5 UG, UNK

REACTIONS (48)
  - PULMONARY INFARCTION [None]
  - NAUSEA [None]
  - HYPOPHAGIA [None]
  - PAIN [None]
  - ASTHENIA [None]
  - THROMBOCYTOPENIA [None]
  - HAEMATOCRIT DECREASED [None]
  - PULMONARY EMBOLISM [None]
  - ACUTE RESPIRATORY FAILURE [None]
  - MUSCLE SPASMS [None]
  - HYPERPARATHYROIDISM SECONDARY [None]
  - COAGULOPATHY [None]
  - COMA [None]
  - BLOOD ALBUMIN INCREASED [None]
  - VITAMIN D DEFICIENCY [None]
  - HYPOTENSION [None]
  - LIVER FUNCTION TEST ABNORMAL [None]
  - HEPATIC STEATOSIS [None]
  - SHOCK [None]
  - INTERNATIONAL NORMALISED RATIO INCREASED [None]
  - HYPERBILIRUBINAEMIA [None]
  - BLOOD CREATININE DECREASED [None]
  - HYPOCALCAEMIA [None]
  - DEHYDRATION [None]
  - BLOOD ALKALINE PHOSPHATASE INCREASED [None]
  - BLOOD GLUCOSE DECREASED [None]
  - BLOOD PRESSURE FLUCTUATION [None]
  - HYPOALBUMINAEMIA [None]
  - FLUID OVERLOAD [None]
  - SYNCOPE [None]
  - BLOOD PRESSURE SYSTOLIC DECREASED [None]
  - BLOOD BILIRUBIN INCREASED [None]
  - FIBRIN D DIMER [None]
  - HEPATOMEGALY [None]
  - TACHYCARDIA [None]
  - ASPARTATE AMINOTRANSFERASE INCREASED [None]
  - ALANINE AMINOTRANSFERASE INCREASED [None]
  - DISSEMINATED INTRAVASCULAR COAGULATION [None]
  - ACIDOSIS HYPERCHLORAEMIC [None]
  - UNRESPONSIVE TO STIMULI [None]
  - MALAISE [None]
  - BLOOD PRESSURE INCREASED [None]
  - PULMONARY OEDEMA [None]
  - OXYGEN SATURATION DECREASED [None]
  - PCO2 DECREASED [None]
  - LUNG INFILTRATION [None]
  - WEIGHT DECREASED [None]
  - FATIGUE [None]
